FAERS Safety Report 10473771 (Version 2)
Quarter: 2014Q3

REPORT INFORMATION
  Report Type: Spontaneous
  Country: CA (occurrence: CA)
  Receive Date: 20140924
  Receipt Date: 20140924
  Transmission Date: 20150326
  Serious: Yes (Death, Other)
  Sender: FDA-Public Use
  Company Number: PHHY2014CA088249

PATIENT

DRUGS (4)
  1. LANSOPRAZOLE. [Suspect]
     Active Substance: LANSOPRAZOLE
     Dosage: UNK UKN, UNK
     Route: 048
  2. ARTANE [Suspect]
     Active Substance: TRIHEXYPHENIDYL HYDROCHLORIDE
     Dosage: UNK UKN, UNK
     Route: 048
  3. LIORESAL [Suspect]
     Active Substance: BACLOFEN
     Dosage: 1056.6 UG, QD
     Route: 037
  4. LOSAC [Suspect]
     Active Substance: OMEPRAZOLE
     Dosage: UNK UKN, UNK
     Route: 048

REACTIONS (2)
  - Pneumonia [Fatal]
  - Respiratory failure [Fatal]
